FAERS Safety Report 8409783-7 (Version None)
Quarter: 2012Q2

REPORT INFORMATION
  Report Type: 
  Country: None (occurrence: None)
  Receive Date: 20120605
  Receipt Date: 20120530
  Transmission Date: 20120825
  Serious: No
  Sender: FDA-Public Use
  Company Number: US-PFIZER INC-2012089647

PATIENT
  Sex: Female
  Weight: 124.72 kg

DRUGS (2)
  1. PRISTIQ [Suspect]
     Indication: ANXIETY
     Dosage: 50 MG, 1X/DAY
     Route: 048
     Dates: start: 20070101
  2. PRISTIQ [Suspect]
     Indication: DEPRESSION
     Dosage: 75 MG, 1X/DAY (1 DOSAGE FORM)
     Route: 048
     Dates: start: 20100816

REACTIONS (5)
  - DEPRESSION [None]
  - IMPAIRED WORK ABILITY [None]
  - DRUG INEFFECTIVE [None]
  - FEELING ABNORMAL [None]
  - ASTHENIA [None]
